FAERS Safety Report 8586703-6 (Version None)
Quarter: 2012Q3

REPORT INFORMATION
  Report Type: 
  Country: None (occurrence: None)
  Receive Date: 20120810
  Receipt Date: 20120806
  Transmission Date: 20120928
  Serious: Yes (Disabling)
  Sender: FDA-Public Use
  Company Number: US-MERCK-1208USA003067

PATIENT

DRUGS (1)
  1. FOSAMAX [Suspect]
     Indication: BONE DISORDER
     Dosage: 1 DF, QW
     Route: 048
     Dates: start: 20090101, end: 20120101

REACTIONS (2)
  - PAIN IN EXTREMITY [None]
  - ABASIA [None]
